FAERS Safety Report 9003130 (Version 1)
Quarter: 2013Q1

REPORT INFORMATION
  Report Type: Spontaneous
  Country: FR (occurrence: FR)
  Receive Date: 20130108
  Receipt Date: 20130108
  Transmission Date: 20140127
  Serious: Yes (Death, Life-Threatening, Other)
  Sender: FDA-Public Use
  Company Number: FR-ROCHE-1175753

PATIENT
  Sex: Male

DRUGS (4)
  1. ACTILYSE [Suspect]
     Indication: INTRACARDIAC THROMBUS
     Route: 042
     Dates: start: 20100426, end: 20100426
  2. HEPARIN SODIUM [Suspect]
     Indication: PULMONARY EMBOLISM
     Route: 042
     Dates: start: 20100426
  3. COKENZEN [Concomitant]
     Indication: HYPERTENSION
  4. ALFUZOSINE [Concomitant]

REACTIONS (5)
  - Hypoxic-ischaemic encephalopathy [Fatal]
  - Shock haemorrhagic [Fatal]
  - Retroperitoneal haematoma [Fatal]
  - Thrombocytopenia [Unknown]
  - Myocardial ischaemia [Unknown]
